FAERS Safety Report 16153715 (Version 1)
Quarter: 2019Q2

REPORT INFORMATION
  Report Type: Report from Study
  Country: ZA (occurrence: ZA)
  Receive Date: 20190403
  Receipt Date: 20190403
  Transmission Date: 20190711
  Serious: Yes (Other)
  Sender: FDA-Public Use
  Company Number: ZA-SA-2019SA086237

PATIENT
  Age: 55 Year
  Sex: Male

DRUGS (6)
  1. OPTISULIN (INSULIN GLARGINE) [Suspect]
     Active Substance: INSULIN GLARGINE
     Dosage: 74 U, HS
     Dates: start: 20181029
  2. NO STUDY DRUG GIVEN [Suspect]
     Active Substance: UNSPECIFIED INGREDIENT
     Dosage: UNK
  3. PURATA [Concomitant]
     Active Substance: OXAZEPAM
     Dosage: 30 MG, QD
     Dates: start: 20181115
  4. ASPAVOR [Concomitant]
     Active Substance: ATORVASTATIN
     Dosage: UNK
     Dates: start: 20141106
  5. GLUCOPHAGE [Concomitant]
     Active Substance: METFORMIN HYDROCHLORIDE
     Dosage: 1000 MG, BID BEFORE SUPPER AND BEFORE BREAKFAST
     Dates: start: 20181115
  6. NUZAK [Concomitant]
     Active Substance: FLUOXETINE HYDROCHLORIDE
     Dosage: 20 MG, HS BED TIME
     Dates: start: 20161106

REACTIONS (4)
  - Kidney infection [Not Recovered/Not Resolved]
  - Glycosylated haemoglobin increased [Unknown]
  - Cystitis [Not Recovered/Not Resolved]
  - Ill-defined disorder [Not Recovered/Not Resolved]
